FAERS Safety Report 9605013 (Version 3)
Quarter: 2013Q4

REPORT INFORMATION
  Report Type: Spontaneous
  Country: FI (occurrence: FI)
  Receive Date: 20131008
  Receipt Date: 20131028
  Transmission Date: 20140711
  Serious: Yes (Death, Hospitalization)
  Sender: FDA-Public Use
  Company Number: FI-PFIZER INC-2013236067

PATIENT
  Age: 46 Year
  Sex: Male
  Weight: 84 kg

DRUGS (3)
  1. XALKORI [Suspect]
     Indication: NON-SMALL CELL LUNG CANCER
     Dosage: 250 MG, 2X/DAY
     Route: 048
     Dates: start: 20130507, end: 20130523
  2. XALKORI [Suspect]
     Dosage: 250 MG, 2X/DAY
     Dates: start: 20130605, end: 20130612
  3. KLEXANE [Concomitant]
     Dosage: 80 MG, 2X/DAY

REACTIONS (6)
  - Disease progression [Fatal]
  - Non-small cell lung cancer [Fatal]
  - Nausea [Unknown]
  - Vomiting [Unknown]
  - Superior vena cava syndrome [Unknown]
  - Dysphagia [Unknown]
